FAERS Safety Report 9097894 (Version 2)
Quarter: 2013Q1

REPORT INFORMATION
  Report Type: Spontaneous
  Country: US (occurrence: US)
  Receive Date: 20130212
  Receipt Date: 20130308
  Transmission Date: 20140127
  Serious: Yes (Other)
  Sender: FDA-Public Use
  Company Number: US-JNJFOC-20130204483

PATIENT
  Sex: Male
  Weight: 119.3 kg

DRUGS (9)
  1. STELARA [Suspect]
     Indication: PSORIASIS
     Dosage: START DATE: 04-NOV(YEAR UNSPCEIFIED). APPROXIMATE TOTAL NUMBER OF INJECTIONS RECEIVED WAS 10
     Route: 058
  2. STELARA [Suspect]
     Indication: PSORIASIS
     Dosage: APPROXIMATE TOTAL NUMBER OF INJECTIONS RECEIVED WAS 10
     Route: 058
     Dates: start: 20130213
  3. STELARA [Suspect]
     Indication: PSORIASIS
     Route: 058
     Dates: start: 20120310
  4. MELOXICAM [Concomitant]
     Route: 048
  5. METFORMIN HYDROCHLORIDE [Concomitant]
     Route: 048
  6. QVAR [Concomitant]
     Route: 065
  7. SPIRIVA HANDIHALER [Concomitant]
     Route: 055
  8. VENTOLIN HFA [Concomitant]
     Route: 055
  9. ASPIRIN [Concomitant]
     Route: 048

REACTIONS (3)
  - Chronic myeloid leukaemia [Unknown]
  - Decreased immune responsiveness [Unknown]
  - Influenza [Recovering/Resolving]
